FAERS Safety Report 16754750 (Version 3)
Quarter: 2019Q4

REPORT INFORMATION
  Report Type: Spontaneous
  Country: US (occurrence: US)
  Receive Date: 20190829
  Receipt Date: 20191112
  Transmission Date: 20200122
  Serious: Yes (Hospitalization)
  Sender: FDA-Public Use
  Company Number: US-PFIZER INC-2019367872

PATIENT
  Age: 61 Year
  Sex: Female
  Weight: 104.3 kg

DRUGS (2)
  1. RELPAX [Suspect]
     Active Substance: ELETRIPTAN HYDROBROMIDE
     Indication: MIGRAINE
     Dosage: UNK, AS NEEDED (1 DAILY- MAX. 2 IN 24 HRS AS NEEDED MAY REPEAT IN 2 HRS AS NEEDED)
     Route: 048
  2. RELPAX [Suspect]
     Active Substance: ELETRIPTAN HYDROBROMIDE
     Dosage: 40 MG, UNK (COULD TAKE UP GO 3 IN 7 DAYS)
     Route: 048
     Dates: start: 20190821

REACTIONS (9)
  - Dyspnoea [Recovered/Resolved]
  - Malaise [Recovered/Resolved]
  - Recalled product administered [Recovered/Resolved]
  - Vomiting [Recovered/Resolved]
  - Asthenia [Recovered/Resolved]
  - Dizziness [Recovered/Resolved]
  - Nausea [Recovered/Resolved]
  - Injection related reaction [Recovered/Resolved]
  - Diarrhoea [Recovered/Resolved]

NARRATIVE: CASE EVENT DATE: 201908
